FAERS Safety Report 10230811 (Version 1)
Quarter: 2014Q2

REPORT INFORMATION
  Report Type: Spontaneous
  Country: US (occurrence: US)
  Receive Date: 20140611
  Receipt Date: 20140611
  Transmission Date: 20141212
  Serious: Yes (Other)
  Sender: FDA-Public Use
  Company Number: US-ELI_LILLY_AND_COMPANY-US201406000206

PATIENT
  Age: 65 Year
  Sex: Female

DRUGS (10)
  1. HUMALOG 25% LISPRO, 75% NPL [Suspect]
     Indication: TYPE 2 DIABETES MELLITUS
     Dosage: 28 U, BID
  2. HUMALOG LISPRO [Suspect]
     Indication: TYPE 2 DIABETES MELLITUS
     Dosage: UNK
     Route: 065
     Dates: start: 2006
  3. ATORVASTATIN [Concomitant]
     Dosage: 80 MG, QD
  4. CLONIDINE [Concomitant]
     Dosage: .1 MG, QD
  5. CARVEDILOL [Concomitant]
     Dosage: 6.25 MG, UNK
  6. LEVOTHYROXINE [Concomitant]
     Dosage: .25 MG, UNK
  7. LISINOPRIL HCT                     /01613901/ [Concomitant]
     Dosage: 20 MG, QD
  8. FUROSEMIDE [Concomitant]
     Dosage: 20 MG, QD
  9. LYRICA [Concomitant]
     Dosage: 50 MG, BID
  10. HYDROCODONE [Concomitant]
     Dosage: 350 MG, QD

REACTIONS (3)
  - Myocardial infarction [Unknown]
  - Macular oedema [Not Recovered/Not Resolved]
  - Drug dose omission [Unknown]
